FAERS Safety Report 6172158-8 (Version None)
Quarter: 2009Q2

REPORT INFORMATION
  Report Type: 
  Country: None (occurrence: None)
  Receive Date: 20090429
  Receipt Date: 20080416
  Transmission Date: 20091009
  Serious: No
  Sender: FDA-Public Use
  Company Number: A0724878A

PATIENT

DRUGS (3)
  1. ZOFRAN [Suspect]
     Indication: DRUG USE FOR UNKNOWN INDICATION
     Route: 065
  2. ALOXI [Suspect]
     Indication: DRUG USE FOR UNKNOWN INDICATION
  3. OXALIPLATIN [Concomitant]

REACTIONS (1)
  - DRUG INEFFECTIVE [None]
